FAERS Safety Report 4469051-5 (Version None)
Quarter: 2004Q4

REPORT INFORMATION
  Report Type: 
  Country: None (occurrence: None)
  Receive Date: 20041004
  Receipt Date: 20041004
  Transmission Date: 20050328
  Serious: Yes (Other)
  Sender: FDA-Public Use
  Company Number: None

PATIENT
  Age: 56 Year
  Sex: Male
  Weight: 107.5 kg

DRUGS (20)
  1. GATIFLOXACIN [Suspect]
  2. MORPHINE [Concomitant]
  3. HYDROMORPHONE HCL [Concomitant]
  4. HYDROXYZINE PAMOATE [Concomitant]
  5. LORATADINE [Concomitant]
  6. PREDNISONE [Concomitant]
  7. ACYCLOVIR [Concomitant]
  8. AMITRITYLINE HCL [Concomitant]
  9. BUPROPION HCL [Concomitant]
  10. DIVALPROEX SODIUM [Concomitant]
  11. FLUOXETINE HCL [Concomitant]
  12. FOSINOPRIL [Concomitant]
  13. GABAPENTIN [Concomitant]
  14. HYDROXYZINE PAMOATE [Concomitant]
  15. METOPROLOL TARTRATE [Concomitant]
  16. NITROGLYCERIN [Concomitant]
  17. TERAZOSIN HCL [Concomitant]
  18. DOCUSATE NA [Concomitant]
  19. FUROSEMIDE [Concomitant]
  20. RANITIDINE HCL [Concomitant]

REACTIONS (1)
  - URTICARIA [None]
